FAERS Safety Report 14021027 (Version 2)
Quarter: 2024Q1

REPORT INFORMATION
  Report Type: Report from Study
  Country: US (occurrence: US)
  Receive Date: 20170928
  Receipt Date: 20240228
  Transmission Date: 20240409
  Serious: Yes (Hospitalization, Other)
  Sender: FDA-Public Use
  Company Number: US-SHIRE-US201723472

PATIENT
  Sex: Female

DRUGS (3)
  1. LANADELUMAB [Suspect]
     Active Substance: LANADELUMAB
     Indication: Product used for unknown indication
     Dosage: 300 MILLIGRAM, Q2WEEKS
     Route: 058
  2. FIRAZYR [Suspect]
     Active Substance: ICATIBANT ACETATE
     Indication: Hereditary angioedema
     Dosage: 3 DOSAGE FORM
     Route: 065
     Dates: start: 20160629
  3. FIRAZYR [Suspect]
     Active Substance: ICATIBANT ACETATE
     Indication: Hereditary angioedema
     Dosage: 3 DOSAGE FORM
     Route: 065
     Dates: start: 20160629

REACTIONS (3)
  - Hospitalisation [Recovered/Resolved]
  - Illness [Recovered/Resolved]
  - COVID-19 [Recovering/Resolving]
